FAERS Safety Report 19284205 (Version 1)
Quarter: 2021Q2

REPORT INFORMATION
  Report Type: Spontaneous
  Country: US (occurrence: US)
  Receive Date: 20210521
  Receipt Date: 20210521
  Transmission Date: 20210717
  Serious: No
  Sender: FDA-Public Use
  Company Number: None

PATIENT
  Age: 28 Year
  Sex: Female

DRUGS (3)
  1. TYSABRI [Concomitant]
     Active Substance: NATALIZUMAB
  2. PARAGARD T 380A [Suspect]
     Active Substance: COPPER
     Indication: MULTIPLE SCLEROSIS
     Dates: start: 20200901, end: 20210520
  3. VITAMIN D [Concomitant]
     Active Substance: VITAMIN D NOS

REACTIONS (3)
  - Device dislocation [None]
  - Muscle spasms [None]
  - Pain [None]
